FAERS Safety Report 8355802-6 (Version None)
Quarter: 2012Q2

REPORT INFORMATION
  Report Type: 
  Country: None (occurrence: None)
  Receive Date: 20120514
  Receipt Date: 20120508
  Transmission Date: 20120825
  Serious: No
  Sender: FDA-Public Use
  Company Number: US-PFIZER INC-2010155876

PATIENT
  Sex: Male

DRUGS (4)
  1. PLAVIX [Concomitant]
     Dosage: UNK
  2. ASPIRIN [Concomitant]
     Dosage: UNK
  3. LIPITOR [Suspect]
     Indication: CARDIAC DISORDER
     Dosage: 40 MG, 1X/DAY
     Route: 048
  4. CARVEDILOL [Concomitant]
     Dosage: UNK

REACTIONS (2)
  - DEPRESSION [None]
  - POLLAKIURIA [None]
